FAERS Safety Report 6259324-8 (Version None)
Quarter: 2009Q3

REPORT INFORMATION
  Report Type: 
  Country: None (occurrence: None)
  Receive Date: 20090707
  Receipt Date: 20090702
  Transmission Date: 20100115
  Serious: Yes (Death)
  Sender: FDA-Public Use
  Company Number: US-GILEAD-2009-0022915

PATIENT
  Sex: Female

DRUGS (1)
  1. LETAIRIS [Suspect]
     Indication: PULMONARY ARTERIAL HYPERTENSION
     Dates: start: 20090505

REACTIONS (4)
  - CARDIAC DISORDER [None]
  - DEATH [None]
  - PULMONARY ARTERIAL HYPERTENSION [None]
  - RENAL FAILURE CHRONIC [None]
